FAERS Safety Report 15686681 (Version 1)
Quarter: 2018Q4

REPORT INFORMATION
  Report Type: Spontaneous
  Country: US (occurrence: US)
  Receive Date: 20181204
  Receipt Date: 20181204
  Transmission Date: 20190205
  Serious: Yes (Other)
  Sender: FDA-Public Use
  Company Number: US-PURDUE-USA-2018-0145352

PATIENT
  Age: 71 Year
  Sex: Male

DRUGS (3)
  1. COLACE 2 IN 1 [Suspect]
     Active Substance: DOCUSATE SODIUM\SENNOSIDES
     Indication: CONSTIPATION
     Dosage: 2 CAPSL, SINGLE
     Route: 048
     Dates: start: 20181129
  2. COLACE 2 IN 1 [Suspect]
     Active Substance: DOCUSATE SODIUM\SENNOSIDES
     Dosage: 1-2 CAPSL, PRN
     Route: 048
     Dates: start: 2018
  3. COLACE 2 IN 1 [Suspect]
     Active Substance: DOCUSATE SODIUM\SENNOSIDES
     Indication: CONSTIPATION
     Dosage: 1 CAPSL, SINGLE
     Route: 048
     Dates: start: 20181128

REACTIONS (3)
  - Drug ineffective [Recovering/Resolving]
  - Hernia repair [Recovered/Resolved]
  - Drug effect decreased [Unknown]

NARRATIVE: CASE EVENT DATE: 20181126
